FAERS Safety Report 5350730-2 (Version None)
Quarter: 2007Q2

REPORT INFORMATION
  Report Type: 
  Country: None (occurrence: None)
  Receive Date: 20070608
  Receipt Date: 20070528
  Transmission Date: 20071010
  Serious: Yes (Hospitalization)
  Sender: FDA-Public Use
  Company Number: JP-ELI_LILLY_AND_COMPANY-JP200612004165

PATIENT
  Age: 68 Year
  Sex: Female
  Weight: 61 kg

DRUGS (2)
  1. RALOXIFENE HCL [Suspect]
     Indication: OSTEOPOROSIS POSTMENOPAUSAL
     Dosage: 60 MG, DAILY (1/D)
     Route: 048
     Dates: start: 20050228
  2. MAGNESIUM OXIDE [Concomitant]
     Indication: CONSTIPATION
     Dosage: 1.5 G, DAILY (1/D)
     Route: 048
     Dates: start: 20030823

REACTIONS (1)
  - OVARIAN CANCER RECURRENT [None]
